FAERS Safety Report 23870230 (Version 3)
Quarter: 2024Q3

REPORT INFORMATION
  Report Type: Report from Study
  Country: CA (occurrence: CA)
  Receive Date: 20240517
  Receipt Date: 20240712
  Transmission Date: 20241017
  Serious: Yes (Death, Other)
  Sender: SAMSUNG BIOEPIS
  Company Number: CA-SAMSUNG BIOEPIS-SB-2024-14558

PATIENT

DRUGS (1)
  1. BYOOVIZ [Suspect]
     Active Substance: RANIBIZUMAB-NUNA
     Indication: Product used for unknown indication
     Route: 031
     Dates: end: 20240422

REACTIONS (6)
  - Hypersensitivity [Fatal]
  - Hypothermia [Fatal]
  - Blood pressure increased [Fatal]
  - Lymphadenopathy [Fatal]
  - Skin reaction [Fatal]
  - Chills [Fatal]
